FAERS Safety Report 12159500 (Version 1)
Quarter: 2016Q1

REPORT INFORMATION
  Report Type: Spontaneous
  Country: US (occurrence: None)
  Receive Date: 20160307
  Receipt Date: 20160307
  Transmission Date: 20160526
  Serious: Yes (Other)
  Sender: FDA-Public Use
  Company Number: None

PATIENT
  Age: 56 Year
  Sex: Female
  Weight: 113 kg

DRUGS (12)
  1. TUMERIC [Concomitant]
     Active Substance: TURMERIC
  2. APAP [Concomitant]
     Active Substance: ACETAMINOPHEN
  3. MAGNESIUM [Concomitant]
     Active Substance: MAGNESIUM
  4. SPIRULINA [Concomitant]
     Active Substance: SPIRULINA
  5. IBUPROFEN 600 MG [Suspect]
     Active Substance: IBUPROFEN
     Indication: PAIN
     Route: 048
     Dates: start: 20160120, end: 20160204
  6. GLUCOSAMINE CHONDROITIN-VITAMIN C-MANGANESE [Concomitant]
  7. CASTOR OIL. [Concomitant]
     Active Substance: CASTOR OIL
  8. BEE POLLEN [Concomitant]
     Active Substance: BEE POLLEN
  9. BREWER^S YEAST [Concomitant]
  10. MVI [Concomitant]
     Active Substance: VITAMINS
  11. ERGOCALCIFEROL. [Concomitant]
     Active Substance: ERGOCALCIFEROL
  12. FISH OIL [Concomitant]
     Active Substance: FISH OIL

REACTIONS (5)
  - Limb discomfort [None]
  - Rash [None]
  - Burning sensation [None]
  - Erythema nodosum [None]
  - Swelling [None]

NARRATIVE: CASE EVENT DATE: 20160125
